FAERS Safety Report 6848408-9 (Version None)
Quarter: 2010Q3

REPORT INFORMATION
  Report Type: 
  Country: None (occurrence: None)
  Receive Date: 20100716
  Receipt Date: 20100715
  Transmission Date: 20110219
  Serious: Yes (Life-Threatening)
  Sender: FDA-Public Use
  Company Number: FR-ASTRAZENECA-2010SE32956

PATIENT
  Age: 56 Year
  Sex: Female

DRUGS (2)
  1. CARBOCAINE [Suspect]
     Indication: LOCAL ANAESTHESIA
     Dosage: 2 %, SINGLE ADMINISTRATION
     Route: 035
     Dates: start: 20090712
  2. NAROPIN [Suspect]
     Indication: LOCAL ANAESTHESIA
     Dosage: 7.5 MG/ML, SINGLE ADMINISTRATION
     Route: 035
     Dates: start: 20090712

REACTIONS (3)
  - CARDIAC ARREST [None]
  - CONVULSION [None]
  - TACHYCARDIA [None]
